FAERS Safety Report 12918056 (Version 3)
Quarter: 2016Q4

REPORT INFORMATION
  Report Type: Report from Study
  Country: US (occurrence: US)
  Receive Date: 20161107
  Receipt Date: 20161215
  Transmission Date: 20170207
  Serious: No
  Sender: FDA-Public Use
  Company Number: US-ACTELION-A-US2016-144760

PATIENT
  Age: 74 Year
  Sex: Female
  Weight: 82.54 kg

DRUGS (3)
  1. LETAIRIS [Concomitant]
     Active Substance: AMBRISENTAN
  2. ADCIRCA [Concomitant]
     Active Substance: TADALAFIL
  3. UPTRAVI [Suspect]
     Active Substance: SELEXIPAG
     Indication: PULMONARY HYPERTENSION
     Dosage: 200 MCG, BID
     Route: 048
     Dates: start: 20161014

REACTIONS (5)
  - Hypotension [Unknown]
  - Breath sounds abnormal [Unknown]
  - Lethargy [Unknown]
  - Malaise [Unknown]
  - Diarrhoea [Unknown]
